FAERS Safety Report 5045860-9 (Version None)
Quarter: 2006Q3

REPORT INFORMATION
  Report Type: 
  Country: None (occurrence: None)
  Receive Date: 20060710
  Receipt Date: 20050908
  Transmission Date: 20061208
  Serious: Yes (Hospitalization)
  Sender: FDA-Public Use
  Company Number: 2005AC01313

PATIENT
  Age: 18743 Day
  Sex: Male

DRUGS (7)
  1. IRESSA [Suspect]
     Indication: LIP AND/OR ORAL CAVITY CANCER
     Route: 048
     Dates: start: 20050811, end: 20050909
  2. IRESSA [Suspect]
     Dosage: RESTARTED AT REDUCED DOSE
     Route: 048
     Dates: start: 20050915
  3. ERBITUX [Suspect]
     Indication: LIP AND/OR ORAL CAVITY CANCER
     Route: 042
     Dates: start: 20050811, end: 20050811
  4. ERBITUX [Suspect]
     Route: 042
     Dates: start: 20050818, end: 20050901
  5. ERBITUX [Suspect]
     Dosage: RESTARTED AT REDUCED DOSE
     Route: 042
     Dates: start: 20050915
  6. DURAGESIC-100 [Concomitant]
     Indication: PAIN
     Route: 003
  7. MORPHINE [Concomitant]
     Indication: PAIN
     Route: 048

REACTIONS (3)
  - ANOREXIA [None]
  - NAUSEA [None]
  - OESOPHAGITIS [None]
